FAERS Safety Report 8502545-1 (Version None)
Quarter: 2012Q3

REPORT INFORMATION
  Report Type: 
  Country: None (occurrence: None)
  Receive Date: 20120711
  Receipt Date: 20120628
  Transmission Date: 20120928
  Serious: Yes (Death)
  Sender: FDA-Public Use
  Company Number: FR-ELI_LILLY_AND_COMPANY-FR201206002863

PATIENT
  Age: 26 Year
  Sex: Male

DRUGS (3)
  1. GILENYA [Concomitant]
     Indication: MULTIPLE SCLEROSIS
     Dosage: 1 DF, UNK
     Dates: start: 20120126, end: 20120227
  2. ALPRAZOLAM [Concomitant]
     Indication: DEPRESSION
     Dosage: 1 DF, UNK
     Dates: start: 20120101
  3. PROZAC [Suspect]
     Indication: DEPRESSION
     Dosage: 20 MG, QD
     Route: 048
     Dates: start: 20120101

REACTIONS (1)
  - DEATH [None]
